FAERS Safety Report 9000922 (Version 1)
Quarter: 2013Q1

REPORT INFORMATION
  Report Type: Spontaneous
  Country: US (occurrence: None)
  Receive Date: 20130103
  Receipt Date: 20130103
  Transmission Date: 20140127
  Serious: No
  Sender: FDA-Public Use
  Company Number: None

PATIENT
  Age: 48 Year
  Sex: Female
  Weight: 40.82 kg

DRUGS (1)
  1. ZANAFLEX [Suspect]
     Indication: ARTHRITIS
     Route: 048
     Dates: start: 20121231, end: 20121231

REACTIONS (4)
  - Abdominal pain upper [None]
  - Vomiting [None]
  - Diarrhoea [None]
  - Influenza [None]
